FAERS Safety Report 9131588 (Version 1)
Quarter: 2013Q1

REPORT INFORMATION
  Report Type: Spontaneous
  Country: US (occurrence: US)
  Receive Date: 20130301
  Receipt Date: 20130301
  Transmission Date: 20140127
  Serious: No
  Sender: FDA-Public Use
  Company Number: US-MYLANLABS-2012S1008730

PATIENT
  Age: 17 Year
  Sex: Male

DRUGS (2)
  1. AMNESTEEM CAPSULES [Suspect]
     Indication: ACNE
     Dosage: 20MG IN MORNING DAILY
     Route: 048
     Dates: start: 20110328, end: 20110531
  2. AMNESTEEM CAPSULES [Suspect]
     Indication: ACNE
     Dosage: 40MG DAILY IN EVENING
     Route: 048
     Dates: start: 20110328, end: 20110531

REACTIONS (2)
  - Aspartate aminotransferase increased [Recovered/Resolved]
  - Alanine aminotransferase increased [Recovering/Resolving]
